FAERS Safety Report 18121445 (Version 1)
Quarter: 2020Q3

REPORT INFORMATION
  Report Type: Spontaneous
  Country: US (occurrence: US)
  Receive Date: 20200806
  Receipt Date: 20200806
  Transmission Date: 20201103
  Serious: No
  Sender: FDA-Public Use
  Company Number: US-ASSERTIO THERAPEUTICS, INC.-US-2020DEP000072

PATIENT
  Sex: Female

DRUGS (1)
  1. CAMBIA [Suspect]
     Active Substance: DICLOFENAC POTASSIUM
     Indication: MIGRAINE WITHOUT AURA
     Dosage: 50 MG, BID, MIX ONE PACKET IN WATER DRINK ON AN EMPTY STOMACH AT ONSET OF HEADACHE, MAX TWO PER DAY
     Route: 048

REACTIONS (1)
  - Dyspepsia [Not Recovered/Not Resolved]
